FAERS Safety Report 16281767 (Version 1)
Quarter: 2019Q2

REPORT INFORMATION
  Report Type: Spontaneous
  Country: US (occurrence: US)
  Receive Date: 20190507
  Receipt Date: 20190507
  Transmission Date: 20190711
  Serious: No
  Sender: FDA-Public Use
  Company Number: US-BRISTOL-MYERS SQUIBB COMPANY-BMS-2019-043378

PATIENT
  Sex: Female

DRUGS (1)
  1. ELIQUIS [Suspect]
     Active Substance: APIXABAN
     Indication: AUTOIMMUNE DISORDER
     Dosage: 2.5 MILLIGRAM, BID
     Route: 048
     Dates: start: 201904

REACTIONS (5)
  - Skin discolouration [Unknown]
  - Platelet count decreased [Unknown]
  - Epistaxis [Unknown]
  - Product use in unapproved indication [Unknown]
  - Contusion [Unknown]
